FAERS Safety Report 4361689-9 (Version None)
Quarter: 2004Q2

REPORT INFORMATION
  Report Type: 
  Country: None (occurrence: None)
  Receive Date: 20040519
  Receipt Date: 20040519
  Transmission Date: 20050107
  Serious: Yes (Hospitalization)
  Sender: FDA-Public Use
  Company Number: None

PATIENT
  Sex: Male
  Weight: 117 kg

DRUGS (11)
  1. INSULIN [Suspect]
     Indication: DIABETES MELLITUS INSULIN-DEPENDENT
     Dates: start: 20000101
  2. ASPIRIN [Concomitant]
  3. WARFARIN SODIUM [Concomitant]
  4. HUMULIN 70/30 [Concomitant]
  5. DIGOXIN [Concomitant]
  6. FUROSEMIDE [Concomitant]
  7. ATORVASTATIN CALCIUM [Concomitant]
  8. METOPROLOL [Concomitant]
  9. PAROXETINE HCL [Concomitant]
  10. ENALAPRIL MALEATE [Concomitant]
  11. METOLAZONE [Concomitant]

REACTIONS (8)
  - ASTHENIA [None]
  - BLOOD CHOLESTEROL INCREASED [None]
  - BLOOD GLUCOSE INCREASED [None]
  - BLOOD LACTATE DEHYDROGENASE INCREASED [None]
  - BLOOD TRIGLYCERIDES INCREASED [None]
  - FATIGUE [None]
  - PROTHROMBIN TIME PROLONGED [None]
  - TREATMENT NONCOMPLIANCE [None]
